FAERS Safety Report 9306248 (Version 1)
Quarter: 2013Q2

REPORT INFORMATION
  Report Type: Spontaneous
  Country: JP (occurrence: JP)
  Receive Date: 20130523
  Receipt Date: 20130523
  Transmission Date: 20140414
  Serious: Yes (Other)
  Sender: FDA-Public Use
  Company Number: JP-MYLANLABS-2013S1010705

PATIENT
  Age: 53 Year
  Sex: Male

DRUGS (7)
  1. FUROSEMIDE [Suspect]
     Indication: DIURETIC THERAPY
     Dosage: 60 MG/DAY
     Route: 065
  2. TORASEMIDE [Suspect]
     Indication: DIURETIC THERAPY
     Dosage: 4 MG/DAY
     Route: 065
  3. TRICHLORMETHIAZIDE [Suspect]
     Indication: DIURETIC THERAPY
     Dosage: 4 MG/DAY
     Route: 065
  4. CARVEDILOL [Concomitant]
     Dosage: 2.5MG
     Route: 065
  5. ENALAPRIL [Concomitant]
     Dosage: 2.5MG
     Route: 065
  6. SPIRONOLACTONE [Concomitant]
     Dosage: 25MG
     Route: 065
  7. DOBUTAMINE [Concomitant]
     Dosage: 3 GAMMA
     Route: 065

REACTIONS (2)
  - Renal impairment [Recovering/Resolving]
  - Hyponatraemia [Recovered/Resolved]
